FAERS Safety Report 20930837 (Version 1)
Quarter: 2022Q2

REPORT INFORMATION
  Report Type: Report from Study
  Country: AU (occurrence: AU)
  Receive Date: 20220608
  Receipt Date: 20220608
  Transmission Date: 20220721
  Serious: Yes (Death, Hospitalization)
  Sender: FDA-Public Use
  Company Number: AU-MYLANLABS-2022M1042669

PATIENT
  Age: 45 Year
  Sex: Male

DRUGS (4)
  1. FENTANYL [Suspect]
     Active Substance: FENTANYL
     Indication: Analgesic therapy
     Dosage: 110 MICROGRAM
     Route: 042
  2. TEMAZEPAM [Suspect]
     Active Substance: TEMAZEPAM
     Indication: Sedative therapy
     Dosage: 20 MILLIGRAM
  3. MORPHINE [Suspect]
     Active Substance: MORPHINE
     Indication: Analgesic therapy
     Dosage: 2 MILLIGRAM, QH
     Route: 042
  4. PROMETHAZINE [Suspect]
     Active Substance: PROMETHAZINE HYDROCHLORIDE
     Indication: Antiallergic therapy
     Dosage: 30 MILLIGRAM

REACTIONS (2)
  - Respiratory depression [Fatal]
  - Brain injury [Fatal]
